FAERS Safety Report 6911482-5 (Version None)
Quarter: 2010Q3

REPORT INFORMATION
  Report Type: 
  Country: None (occurrence: None)
  Receive Date: 20100806
  Receipt Date: 20100802
  Transmission Date: 20110219
  Serious: Yes (Death, Hospitalization, Other)
  Sender: FDA-Public Use
  Company Number: AU-ELI_LILLY_AND_COMPANY-AU201007005110

PATIENT
  Sex: Female

DRUGS (6)
  1. ALIMTA [Suspect]
     Indication: NON-SMALL CELL LUNG CANCER
     Dosage: 800 MG, EVERY 21 DAYS
     Route: 065
     Dates: start: 20100623
  2. AZITHROMYCIN [Concomitant]
     Indication: PULMONARY EMBOLISM
     Route: 042
  3. PANTOPRAZOLE [Concomitant]
     Dosage: 40 MG, UNK
  4. TRANDOLAPRIL [Concomitant]
     Dosage: 1 MG, UNK
  5. FOLIC ACID [Concomitant]
     Dosage: 0.5 MG, UNK
     Route: 048
  6. VITAMIN B-12 [Concomitant]

REACTIONS (7)
  - GENERAL PHYSICAL HEALTH DETERIORATION [None]
  - INFECTION [None]
  - LYMPHANGIOSIS CARCINOMATOSA [None]
  - MALIGNANT NEOPLASM PROGRESSION [None]
  - PNEUMONITIS [None]
  - PULMONARY EMBOLISM [None]
  - RASH [None]
